FAERS Safety Report 18817028 (Version 2)
Quarter: 2021Q1

REPORT INFORMATION
  Report Type: Spontaneous
  Country: ZA (occurrence: ZA)
  Receive Date: 20210201
  Receipt Date: 20210223
  Transmission Date: 20210419
  Serious: Yes (Other)
  Sender: FDA-Public Use
  Company Number: ZA-JNJFOC-20210137248

PATIENT
  Age: 47 Year
  Sex: Female
  Weight: 80 kg

DRUGS (6)
  1. XEPLION [Suspect]
     Active Substance: PALIPERIDONE PALMITATE
  2. DISIPAL [Suspect]
     Active Substance: ORPHENADRINE HYDROCHLORIDE
     Indication: PARKINSONISM
     Route: 048
     Dates: start: 2017
  3. XEPLION [Suspect]
     Active Substance: PALIPERIDONE PALMITATE
     Indication: SCHIZOPHRENIA
     Route: 030
     Dates: start: 2017
  4. XEPLION [Suspect]
     Active Substance: PALIPERIDONE PALMITATE
     Indication: BIPOLAR I DISORDER
  5. FOLATE [Concomitant]
     Active Substance: FOLATE SODIUM
     Indication: MINERAL SUPPLEMENTATION
     Route: 065
     Dates: start: 2017
  6. INDERAL [Suspect]
     Active Substance: PROPRANOLOL HYDROCHLORIDE
     Indication: TREMOR
     Route: 048
     Dates: start: 2017

REACTIONS (2)
  - Exposure during pregnancy [Recovered/Resolved]
  - Abortion spontaneous [Unknown]

NARRATIVE: CASE EVENT DATE: 2020
